FAERS Safety Report 5275017-8 (Version None)
Quarter: 2007Q1

REPORT INFORMATION
  Report Type: 
  Country: None (occurrence: None)
  Receive Date: 20070325
  Receipt Date: 20070312
  Transmission Date: 20070707
  Serious: Yes (Other)
  Sender: FDA-Public Use
  Company Number: US-JNJFOC-20070302830

PATIENT
  Sex: Female
  Weight: 121.11 kg

DRUGS (5)
  1. REMICADE [Suspect]
     Indication: CROHN'S DISEASE
     Dosage: 5-10 MG/KG;TOTAL INFUSIONS RECEIVED:8+
     Route: 042
  2. MERCAPTOPURINE [Concomitant]
  3. ALEVE [Concomitant]
  4. MULTI-VITAMINS [Concomitant]
  5. SOLU-CORTEF [Concomitant]
     Route: 040

REACTIONS (1)
  - TUBERCULOSIS [None]
